FAERS Safety Report 10369391 (Version 1)
Quarter: 2014Q1

REPORT INFORMATION
  Report Type: Spontaneous
  Country: US (occurrence: None)
  Receive Date: 20140306
  Receipt Date: 20140306
  Transmission Date: 20141002
  Serious: Yes (Hospitalization)
  Sender: FDA-Public Use
  Company Number: 163-21880-13091320

PATIENT
  Age: 62 Year
  Sex: Male

DRUGS (23)
  1. REVLIMID [Suspect]
     Indication: PLASMA CELL MYELOMA
     Dosage: 5 MG, 21 IN 21 D, PO
     Route: 048
     Dates: start: 201209
  2. EPOGEN (EPOETIN ALFA) [Concomitant]
  3. GABAPENTIN [Concomitant]
  4. RANITIDINE [Concomitant]
  5. BENAZEPRIL [Concomitant]
  6. ATORVASTATIN [Concomitant]
  7. BYSTOLIC (NEBIVOLOL HYDROCHLORIDE) [Concomitant]
  8. LANTUS (INSULIN GLARGINE) [Concomitant]
  9. HUMALOG (INSULIN LISPRO) [Concomitant]
  10. LORTAB (VICODIN) [Concomitant]
  11. ADVAIR DISKUS [Concomitant]
  12. VENTOLIN (SALBUTAMOL) [Concomitant]
  13. FUROSEMIDE [Concomitant]
  14. CA [Concomitant]
  15. ASA (ACETYLSALICYLIC ACID) [Concomitant]
  16. NORVASC (AMLODIPINE BESILATE) [Concomitant]
  17. KLONOPIN (CLONAZEPAM) [Concomitant]
  18. CLONIDINE [Concomitant]
  19. FOLIC ACID [Concomitant]
  20. NIACIN (NICOTINIC ACID) [Concomitant]
  21. MIRALAX (MACROGOL) [Concomitant]
  22. DOCUSATE [Concomitant]
  23. PREDNISONE [Concomitant]

REACTIONS (2)
  - Infection [None]
  - Neutropenia [None]
